FAERS Safety Report 16001813 (Version 1)
Quarter: 2019Q1

REPORT INFORMATION
  Report Type: Report from Study
  Country: BE (occurrence: BE)
  Receive Date: 20190225
  Receipt Date: 20190225
  Transmission Date: 20190418
  Serious: Yes (Other)
  Sender: FDA-Public Use
  Company Number: BE-BEH-2019099577

PATIENT
  Sex: Female

DRUGS (1)
  1. HIZENTRA [Suspect]
     Active Substance: HUMAN IMMUNOGLOBULIN G
     Indication: PRODUCT USED FOR UNKNOWN INDICATION
     Dosage: 5 G, QW
     Route: 058
     Dates: start: 2018

REACTIONS (5)
  - Adrenal disorder [Unknown]
  - Weight increased [Unknown]
  - Sarcoidosis [Unknown]
  - Precocious puberty [Unknown]
  - Pollakiuria [Unknown]
